FAERS Safety Report 16461110 (Version 1)
Quarter: 2019Q2

REPORT INFORMATION
  Report Type: Spontaneous
  Country: US (occurrence: US)
  Receive Date: 20190620
  Receipt Date: 20190620
  Transmission Date: 20190711
  Serious: No
  Sender: FDA-Public Use
  Company Number: US-TEVA-2019-US-1063729

PATIENT
  Sex: Female

DRUGS (1)
  1. ESTRADIOL TABLETS [Suspect]
     Active Substance: ESTRADIOL

REACTIONS (3)
  - Urticaria [Unknown]
  - Product substitution issue [Unknown]
  - Rash [Unknown]

NARRATIVE: CASE EVENT DATE: 201603
